FAERS Safety Report 6693412-7 (Version None)
Quarter: 2010Q2

REPORT INFORMATION
  Report Type: 
  Country: None (occurrence: None)
  Receive Date: 20100423
  Receipt Date: 20100412
  Transmission Date: 20101027
  Serious: Yes (Other)
  Sender: FDA-Public Use
  Company Number: US-ASTRAZENECA-2009UW17441

PATIENT
  Age: 15428 Day
  Sex: Female
  Weight: 86.2 kg

DRUGS (11)
  1. SEROQUEL [Suspect]
     Dosage: 200 MG QM/QHS
     Route: 048
     Dates: start: 20020124
  2. LAMICTAL [Concomitant]
     Dates: start: 20020124
  3. ATIVAN [Concomitant]
     Dosage: 1 MG QM PRN
     Dates: start: 20020124
  4. ALPRAZOLAM [Concomitant]
     Route: 048
     Dates: start: 20020124
  5. AMBIEN [Concomitant]
     Dates: start: 20020124
  6. GLUCOPHAGE [Concomitant]
     Dates: start: 20020124
  7. DILTIAZEM HCL [Concomitant]
     Dates: start: 20020124
  8. SORBITOL [Concomitant]
     Dates: start: 20071227
  9. PREDNISONE [Concomitant]
     Dates: end: 20071227
  10. PREVACID [Concomitant]
     Dates: start: 20071227
  11. REGLAN [Concomitant]
     Dates: start: 20071227

REACTIONS (2)
  - DIABETES MELLITUS [None]
  - DIABETIC GASTROPARESIS [None]
